FAERS Safety Report 7750009-5 (Version None)
Quarter: 2011Q3

REPORT INFORMATION
  Report Type: 
  Country: None (occurrence: None)
  Receive Date: 20110914
  Receipt Date: 20110913
  Transmission Date: 20111222
  Serious: Yes (Hospitalization, Other)
  Sender: FDA-Public Use
  Company Number: CA-TEVA-154026USA

PATIENT
  Age: 18 Year
  Sex: Female
  Weight: 52 kg

DRUGS (1)
  1. FUROSEMIDE [Suspect]
     Dosage: 120 MILLIGRAM;

REACTIONS (2)
  - RESPIRATORY FAILURE [None]
  - ENCEPHALOPATHY [None]
